FAERS Safety Report 6105207-3 (Version None)
Quarter: 2009Q1

REPORT INFORMATION
  Report Type: 
  Country: None (occurrence: None)
  Receive Date: 20090304
  Receipt Date: 20090304
  Transmission Date: 20090719
  Serious: Yes (Hospitalization)
  Sender: FDA-Public Use
  Company Number: None

PATIENT
  Age: 67 Year
  Sex: Male
  Weight: 68 kg

DRUGS (1)
  1. IMATINIB MESYLATE [Suspect]
     Dosage: 400 MG EVERY DAY PO
     Route: 048
     Dates: start: 20080826, end: 20090201

REACTIONS (1)
  - LEUKOPENIA [None]
